FAERS Safety Report 6821166-X (Version None)
Quarter: 2010Q3

REPORT INFORMATION
  Report Type: 
  Country: None (occurrence: None)
  Receive Date: 20100707
  Receipt Date: 20080107
  Transmission Date: 20110219
  Serious: Yes (Other)
  Sender: FDA-Public Use
  Company Number: US-PFIZER INC-2008001827

PATIENT
  Sex: Female
  Weight: 65.8 kg

DRUGS (2)
  1. ZOLOFT [Suspect]
     Indication: DEPRESSION
  2. ZOLOFT [Suspect]
     Indication: ANXIETY

REACTIONS (3)
  - REPRODUCTIVE TRACT DISORDER [None]
  - STRESS [None]
  - VAGINAL HAEMORRHAGE [None]
